FAERS Safety Report 7171012-2 (Version None)
Quarter: 2010Q4

REPORT INFORMATION
  Report Type: 
  Country: None (occurrence: None)
  Receive Date: 20101217
  Receipt Date: 20101206
  Transmission Date: 20110411
  Serious: Yes (Other)
  Sender: FDA-Public Use
  Company Number: CA-JNJFOC-20101203430

PATIENT
  Sex: Female
  Weight: 64.6 kg

DRUGS (12)
  1. REMICADE [Suspect]
     Indication: RHEUMATOID ARTHRITIS
     Dosage: 14TH INFUSION
     Route: 042
  2. REMICADE [Suspect]
     Route: 042
  3. SYNTHROID [Concomitant]
     Indication: HYPOTHYROIDISM
  4. PARIET [Concomitant]
     Indication: NAUSEA
  5. PARIET [Concomitant]
     Indication: ABDOMINAL DISCOMFORT
  6. WELLBUTRIN XL [Concomitant]
     Indication: DEPRESSION
  7. PREDNISONE [Concomitant]
     Indication: RHEUMATOID ARTHRITIS
  8. METHOTREXATE [Concomitant]
     Indication: RHEUMATOID ARTHRITIS
  9. FOLIC ACID [Concomitant]
     Indication: PROPHYLAXIS OF NAUSEA AND VOMITING
  10. MAVIK [Concomitant]
     Indication: HYPERTENSION
     Route: 048
  11. ESTRADIOL [Concomitant]
  12. VENTOLIN [Concomitant]
     Indication: ASTHMA

REACTIONS (1)
  - PRECANCEROUS SKIN LESION [None]
